FAERS Safety Report 24294462 (Version 1)
Quarter: 2024Q3

REPORT INFORMATION
  Report Type: Spontaneous
  Country: CN (occurrence: CN)
  Receive Date: 20240906
  Receipt Date: 20240906
  Transmission Date: 20241017
  Serious: Yes (Hospitalization, Other)
  Sender: ABBVIE
  Company Number: CN-ABBVIE-5904594

PATIENT
  Age: 69 Year
  Sex: Male
  Weight: 69 kg

DRUGS (3)
  1. VENETOCLAX [Suspect]
     Active Substance: VENETOCLAX
     Indication: Acute leukaemia
     Dosage: 200 MILLIGRAM
     Route: 048
     Dates: start: 20240705, end: 20240716
  2. CYTARABINE [Suspect]
     Active Substance: CYTARABINE
     Indication: Neoplasm prophylaxis
     Dosage: (2G, D1-D3, Q12H) IVGTT
     Route: 041
     Dates: start: 20240705, end: 20240707
  3. GRANULOCYTE COLONY-STIMULATING FACTOR NOS [Suspect]
     Active Substance: GRANULOCYTE COLONY-STIMULATING FACTOR NOS
     Indication: White blood cell count increased
     Route: 041
     Dates: start: 2024

REACTIONS (6)
  - Myelosuppression [Recovering/Resolving]
  - Agranulocytosis [Unknown]
  - Immunodeficiency [Unknown]
  - White blood cell count decreased [Unknown]
  - Neutrophil count decreased [Unknown]
  - Platelet count decreased [Unknown]

NARRATIVE: CASE EVENT DATE: 20240101
